FAERS Safety Report 5239830-5 (Version None)
Quarter: 2007Q1

REPORT INFORMATION
  Report Type: 
  Country: None (occurrence: None)
  Receive Date: 20070214
  Receipt Date: 20070214
  Transmission Date: 20070707
  Serious: Yes (Hospitalization)
  Sender: FDA-Public Use
  Company Number: None

PATIENT
  Age: 65 Year
  Sex: Male
  Weight: 61 kg

DRUGS (11)
  1. IODIXANOL UNKNOWN NYCOMED [Suspect]
     Indication: COMPUTERISED TOMOGRAM
     Dosage: UNKNOWN IV  ONE DOSE
     Route: 042
     Dates: start: 20061211, end: 20061211
  2. GLIPIZIDE [Concomitant]
  3. EZETIMIBE 10MG/SIMVASTATIN [Concomitant]
  4. ROSIGLITAZONE [Concomitant]
  5. GLIPIZIDE [Concomitant]
  6. FLUNISOLIDE [Concomitant]
  7. ALBUTEROL [Concomitant]
  8. IPRATROPIUM BROMIDE [Concomitant]
  9. LORATADINE [Concomitant]
  10. OMEPRAZOLE [Concomitant]
  11. AMLODIPINE [Concomitant]

REACTIONS (8)
  - BLOOD PRESSURE INCREASED [None]
  - BREATH SOUNDS ABNORMAL [None]
  - CHEST DISCOMFORT [None]
  - DYSPNOEA [None]
  - FLUSHING [None]
  - NAUSEA [None]
  - OROPHARYNGEAL SWELLING [None]
  - TACHYCARDIA [None]
